FAERS Safety Report 8017857-8 (Version None)
Quarter: 2012Q1

REPORT INFORMATION
  Report Type: 
  Country: None (occurrence: None)
  Receive Date: 20120103
  Receipt Date: 20111227
  Transmission Date: 20120608
  Serious: No
  Sender: FDA-Public Use
  Company Number: US-PFIZER INC-2011314374

PATIENT
  Sex: Female

DRUGS (2)
  1. LYRICA [Suspect]
     Indication: CONVULSION
     Dosage: UNK
     Dates: start: 20111222, end: 20111226
  2. KEPPRA [Suspect]
     Dosage: UNK

REACTIONS (7)
  - MUSCLE TWITCHING [None]
  - SOMNOLENCE [None]
  - MUSCLE SPASMS [None]
  - MUSCULAR WEAKNESS [None]
  - NAUSEA [None]
  - CONSTIPATION [None]
  - OVERDOSE [None]
